FAERS Safety Report 15278133 (Version 1)
Quarter: 2018Q3

REPORT INFORMATION
  Report Type: Spontaneous
  Country: NL (occurrence: NL)
  Receive Date: 20180814
  Receipt Date: 20180814
  Transmission Date: 20181010
  Serious: Yes (Hospitalization)
  Sender: FDA-Public Use
  Company Number: NL-TEVA-2018-NL-940426

PATIENT

DRUGS (4)
  1. AVASTIN [Suspect]
     Active Substance: BEVACIZUMAB
     Indication: COLORECTAL CANCER
     Dosage: MOST RECENT DOSE OF BEVACIZUMAB PRIOR TO SAE ONSET WAS ON 06/JUL/2017
     Route: 042
     Dates: start: 20170524
  2. LEUCOVORIN. [Suspect]
     Active Substance: LEUCOVORIN
     Indication: COLORECTAL CANCER
     Dosage: MOST RECENT DOSE OF FOLINIC ACID PRIOR TO SAE ONSET WAS ON 06/JUL/2017
     Route: 042
     Dates: start: 20170524
  3. OXALIPLATIN. [Suspect]
     Active Substance: OXALIPLATIN
     Indication: COLORECTAL CANCER
     Dosage: MOST RECENT DOSE OF OXALIPLATIN PRIOR TO SAE ONSET WAS ON 06/JUL/2017
     Route: 042
     Dates: start: 20170524
  4. 5?FU [Suspect]
     Active Substance: FLUOROURACIL
     Indication: COLORECTAL CANCER
     Dosage: MOST RECENT DOSE OF FLUOROURACIL PRIOR TO SAE ONSET WAS ON 06/JUL/2017
     Route: 042
     Dates: start: 20170524

REACTIONS (1)
  - Abdominal pain [Recovered/Resolved]

NARRATIVE: CASE EVENT DATE: 20170719
